FAERS Safety Report 15784664 (Version 2)
Quarter: 2025Q4

REPORT INFORMATION
  Report Type: Spontaneous
  Country: EU (occurrence: EU)
  Receive Date: 20190103
  Receipt Date: 20251208
  Transmission Date: 20260118
  Serious: Yes (Other)
  Sender: ALKEM
  Company Number: None

PATIENT
  Age: 20 Year
  Sex: Female

DRUGS (21)
  1. MYCOPHENOLATE MOFETIL [Suspect]
     Active Substance: MYCOPHENOLATE MOFETIL
     Indication: Prophylaxis against graft versus host disease
     Dosage: 15 MILLIGRAM/KILOGRAM, QD
     Route: 048
  2. MYCOPHENOLATE MOFETIL [Suspect]
     Active Substance: MYCOPHENOLATE MOFETIL
     Indication: Stem cell transplant
     Dosage: 45 MILLIGRAM/SQ. METER, QD
     Route: 048
  3. MYCOPHENOLATE MOFETIL [Suspect]
     Active Substance: MYCOPHENOLATE MOFETIL
     Indication: Bone marrow conditioning regimen
  4. TACROLIMUS [Suspect]
     Active Substance: TACROLIMUS
     Indication: Prophylaxis against graft versus host disease
     Dosage: UNK (FROM DAY PLUS 5 UNTIL DAY PLUS 100)
     Route: 042
  5. TACROLIMUS [Suspect]
     Active Substance: TACROLIMUS
     Indication: Bone marrow conditioning regimen
     Dosage: UNK (PLUS 5 UNTIL DAY PLUS 100 AIMING AT PLASMA TROUGH LEVELS OF 5-15 NG/ML WITH CONSECUTIVE TAPERIN
     Route: 048
  6. TACROLIMUS [Suspect]
     Active Substance: TACROLIMUS
     Indication: Stem cell transplant
  7. ALEMTUZUMAB [Suspect]
     Active Substance: ALEMTUZUMAB
     Indication: Bone marrow conditioning regimen
     Dosage: 0.2 MILLIGRAM/KILOGRAM, QD (ON DAYS -9 AND -8))
     Route: 065
  8. ALEMTUZUMAB [Suspect]
     Active Substance: ALEMTUZUMAB
     Dosage: 0.2 MILLIGRAM/KILOGRAM, QD
     Route: 065
  9. CYCLOPHOSPHAMIDE [Suspect]
     Active Substance: CYCLOPHOSPHAMIDE
     Indication: Bone marrow conditioning regimen
     Dosage: 50 MILLIGRAM/KILOGRAM, QD (ON DAYS PLUS 3 AND PLUS 4)
     Route: 065
  10. CYCLOPHOSPHAMIDE [Suspect]
     Active Substance: CYCLOPHOSPHAMIDE
     Indication: Prophylaxis against graft versus host disease
     Dosage: 14.5 MILLIGRAM/KILOGRAM, QD (ON DAYS -3 AND -2)
     Route: 065
  11. CYCLOPHOSPHAMIDE [Suspect]
     Active Substance: CYCLOPHOSPHAMIDE
     Indication: Stem cell transplant
     Dosage: UNK
     Route: 065
  12. FLUDARABINE [Suspect]
     Active Substance: FLUDARABINE PHOSPHATE
     Indication: Bone marrow conditioning regimen
     Dosage: 30 MILLIGRAM/SQ. METER, QD (ON DAYS -7 TO -3))
     Route: 065
  13. FLUDARABINE [Suspect]
     Active Substance: FLUDARABINE PHOSPHATE
     Indication: Prophylaxis against graft versus host disease
     Dosage: 30 MICROGRAM/SQ. METER, QD
     Route: 065
  14. THIOTEPA [Suspect]
     Active Substance: THIOTEPA
     Indication: Bone marrow conditioning regimen
     Dosage: 5 MILLIGRAM/KILOGRAM, BID
     Route: 065
  15. THIOTEPA [Suspect]
     Active Substance: THIOTEPA
     Indication: Prophylaxis against graft versus host disease
     Dosage: UNK (RECHALLENGE)
     Route: 065
  16. TREOSULFAN [Suspect]
     Active Substance: TREOSULFAN
     Indication: Bone marrow conditioning regimen
     Dosage: 42000 MILLIGRAM/SQ. METER, QD
     Route: 065
  17. TREOSULFAN [Suspect]
     Active Substance: TREOSULFAN
     Indication: Prophylaxis against graft versus host disease
  18. GRANULOCYTE COLONY-STIMULATING FACTOR NOS [Concomitant]
     Active Substance: GRANULOCYTE COLONY-STIMULATING FACTOR NOS
     Indication: Prophylaxis against graft versus host disease
     Dosage: 5 GRAM, OD
     Route: 065
  19. HYDROXYUREA [Concomitant]
     Active Substance: HYDROXYUREA
     Indication: Sickle cell disease
     Dosage: UNK
     Route: 065
  20. LEVETIRACETAM [Concomitant]
     Active Substance: LEVETIRACETAM
     Indication: Prophylaxis
     Dosage: UNK
     Route: 065
  21. RITUXIMAB [Concomitant]
     Active Substance: RITUXIMAB
     Indication: Stem cell transplant
     Dosage: UNK
     Route: 065

REACTIONS (4)
  - Varicella zoster virus infection [Recovered/Resolved]
  - Citrobacter infection [Unknown]
  - Lymphopenia [Unknown]
  - Product use in unapproved indication [Unknown]
